FAERS Safety Report 10654523 (Version 1)
Quarter: 2014Q4

REPORT INFORMATION
  Report Type: Spontaneous
  Country: FI (occurrence: FI)
  Receive Date: 20141216
  Receipt Date: 20141216
  Transmission Date: 20150529
  Serious: Yes (Hospitalization)
  Sender: FDA-Public Use
  Company Number: FI-TEVA-528385ISR

PATIENT
  Age: 65 Year
  Sex: Female
  Weight: 79 kg

DRUGS (1)
  1. AMOXIN COMP 500MG/125MG [Suspect]
     Active Substance: AMOXICILLIN\CLAVULANATE POTASSIUM
     Indication: ANIMAL BITE
     Dosage: 3 TABLET DAILY; 1 TABLET 500MG AMXOCILIIN AND 125MG CLAVULANIC ACID
     Route: 048
     Dates: start: 20140929, end: 20141005

REACTIONS (5)
  - Cholestasis [Recovering/Resolving]
  - Cholangitis [Recovering/Resolving]
  - Dyspepsia [Recovering/Resolving]
  - Toxicity to various agents [None]
  - Rash pruritic [None]

NARRATIVE: CASE EVENT DATE: 20141105
